FAERS Safety Report 5286884-6 (Version None)
Quarter: 2007Q1

REPORT INFORMATION
  Report Type: 
  Country: None (occurrence: None)
  Receive Date: 20070329
  Receipt Date: 20070314
  Transmission Date: 20070707
  Serious: Yes (Other)
  Sender: FDA-Public Use
  Company Number: FABR-11934

PATIENT
  Sex: Female
  Weight: 87 kg

DRUGS (1)
  1. FABRAZYME [Suspect]
     Indication: FABRY'S DISEASE
     Dosage: 87 MG Q2WKS IV
     Route: 042
     Dates: start: 20031001

REACTIONS (1)
  - UNEVALUABLE EVENT [None]
